FAERS Safety Report 22292945 (Version 2)
Quarter: 2023Q2

REPORT INFORMATION
  Report Type: Spontaneous
  Country: HN (occurrence: HN)
  Receive Date: 20230508
  Receipt Date: 20230623
  Transmission Date: 20230722
  Serious: Yes (Death, Other)
  Sender: FDA-Public Use
  Company Number: HN-002147023-NVSC2023HN104193

PATIENT
  Age: 68 Year
  Sex: Male
  Weight: 42.3 kg

DRUGS (2)
  1. GLIVEC [Suspect]
     Active Substance: IMATINIB MESYLATE
     Indication: Chronic myeloid leukaemia
     Dosage: 400 MG (1 X 400MG) (ALTERNATE DAYS)
     Route: 048
     Dates: start: 20210607
  2. ERYTHROPOIETIN [Concomitant]
     Active Substance: ERYTHROPOIETIN
     Indication: Product used for unknown indication
     Dosage: 4000 IU ( LU, MI, VI)
     Route: 065

REACTIONS (12)
  - Haematemesis [Fatal]
  - Gastrointestinal haemorrhage [Fatal]
  - White blood cell count increased [Unknown]
  - Neutrophil count increased [Unknown]
  - High density lipoprotein decreased [Unknown]
  - Haematocrit decreased [Unknown]
  - Platelet count increased [Unknown]
  - Abdominal pain [Unknown]
  - Nausea [Unknown]
  - Vomiting [Unknown]
  - Haemoglobin decreased [Unknown]
  - Lymphocyte count decreased [Unknown]

NARRATIVE: CASE EVENT DATE: 20230315
